FAERS Safety Report 23747938 (Version 1)
Quarter: 2024Q2

REPORT INFORMATION
  Report Type: Spontaneous
  Country: US (occurrence: None)
  Receive Date: 20240416
  Receipt Date: 20240416
  Transmission Date: 20240716
  Serious: No
  Sender: FDA-Public Use
  Company Number: None

PATIENT
  Age: 52 Year
  Sex: Male

DRUGS (1)
  1. HUMIRA [Suspect]
     Active Substance: ADALIMUMAB
     Indication: Hidradenitis
     Dosage: ?INJECT 80MG SUBCUTANEOUSLY EVERY 2 WEEKS  STARTING ON DAY 29 AS DIRECTED.
     Route: 058
     Dates: start: 202403

REACTIONS (1)
  - Device related infection [None]
